FAERS Safety Report 7325805-9 (Version None)
Quarter: 2011Q1

REPORT INFORMATION
  Report Type: 
  Country: None (occurrence: None)
  Receive Date: 20110225
  Receipt Date: 20110225
  Transmission Date: 20110831
  Serious: Yes (Other)
  Sender: FDA-Public Use
  Company Number: None

PATIENT
  Age: 12 Year
  Sex: Female
  Weight: 63.05 kg

DRUGS (1)
  1. WALGREENS BRAND ALCOHOL SWABS WALGREENS [Suspect]
     Indication: DIABETES MELLITUS
     Dates: start: 20110101, end: 20110221

REACTIONS (4)
  - IMPLANT SITE MASS [None]
  - IMPLANT SITE ERYTHEMA [None]
  - IMPLANT SITE INFECTION [None]
  - IMPLANT SITE PAIN [None]
